FAERS Safety Report 6634717-5 (Version None)
Quarter: 2010Q1

REPORT INFORMATION
  Report Type: 
  Country: None (occurrence: None)
  Receive Date: 20100311
  Receipt Date: 20100311
  Transmission Date: 20100710
  Serious: Yes (Other)
  Sender: FDA-Public Use
  Company Number: None

PATIENT
  Sex: Female
  Weight: 53.5244 kg

DRUGS (1)
  1. METOPROLOL SUCCINATE EXTENDED RELEASE [Suspect]
     Indication: SUPRAVENTRICULAR TACHYCARDIA
     Dosage: 1 NIGHTLY
     Dates: start: 20100219, end: 20100224

REACTIONS (9)
  - ABDOMINAL PAIN UPPER [None]
  - BURNING SENSATION [None]
  - CONSTIPATION [None]
  - DYSPEPSIA [None]
  - FATIGUE [None]
  - FEELING ABNORMAL [None]
  - FLATULENCE [None]
  - NAUSEA [None]
  - PRODUCT SUBSTITUTION ISSUE [None]
